FAERS Safety Report 10176958 (Version 2)
Quarter: 2014Q2

REPORT INFORMATION
  Report Type: Report from Study
  Country: JP (occurrence: JP)
  Receive Date: 20140516
  Receipt Date: 20140522
  Transmission Date: 20141212
  Serious: Yes (Hospitalization)
  Sender: FDA-Public Use
  Company Number: JP-CELGENEUS-087-21660-14052319

PATIENT
  Age: 62 Year
  Sex: Male
  Weight: 51 kg

DRUGS (8)
  1. ABRAXANE [Suspect]
     Indication: METASTATIC GASTRIC CANCER
     Route: 041
     Dates: start: 20140414, end: 20140414
  2. MAGLAX [Concomitant]
     Indication: CONSTIPATION
     Route: 048
     Dates: start: 20140315, end: 20140507
  3. PURSENNID [Concomitant]
     Indication: CONSTIPATION
     Route: 048
     Dates: start: 20140315, end: 20140507
  4. ADOAIR [Concomitant]
     Indication: ASTHMA
     Route: 055
     Dates: start: 2013
  5. FUROSEMIDE [Concomitant]
     Indication: ABDOMINAL DISTENSION
     Route: 048
     Dates: start: 20140421, end: 20140507
  6. FUROSEMIDE [Concomitant]
     Indication: WEIGHT INCREASED
  7. FOLIAMIN [Concomitant]
     Indication: ANAEMIA
     Dosage: 15 MILLIGRAM
     Route: 048
     Dates: start: 20140421, end: 20140507
  8. FEROTYM [Concomitant]
     Indication: ANAEMIA
     Dosage: 200 MILLIGRAM
     Route: 048
     Dates: start: 20140421, end: 20140507

REACTIONS (1)
  - Ileus [Recovered/Resolved]
